FAERS Safety Report 5391121-8 (Version None)
Quarter: 2007Q3

REPORT INFORMATION
  Report Type: 
  Country: None (occurrence: None)
  Receive Date: 20070719
  Receipt Date: 20070711
  Transmission Date: 20080115
  Serious: Yes (Hospitalization)
  Sender: FDA-Public Use
  Company Number: PHHO2005KR14607

PATIENT
  Age: 46 Year
  Sex: Male
  Weight: 65 kg

DRUGS (5)
  1. MYFORTIC [Suspect]
     Indication: RENAL TRANSPLANT
     Dosage: 720 MG, BID
     Route: 048
     Dates: start: 20050620
  2. MYFORTIC [Suspect]
     Dosage: 360 MG, BID
     Route: 048
     Dates: start: 20050813, end: 20050909
  3. NEORAL [Concomitant]
     Indication: RENAL TRANSPLANT
     Dosage: 200 MG, BID
     Route: 048
     Dates: start: 20050620, end: 20050919
  4. NEORAL [Concomitant]
     Dosage: 350 MG, BID
     Route: 048
     Dates: start: 20050618
  5. GANCICLOVIR [Suspect]

REACTIONS (12)
  - ABDOMINAL DISCOMFORT [None]
  - BLOOD CREATININE INCREASED [None]
  - CHILLS [None]
  - COUGH [None]
  - CYTOMEGALOVIRUS ANTIGEN POSITIVE [None]
  - CYTOMEGALOVIRUS VIRAEMIA [None]
  - KIDNEY TRANSPLANT REJECTION [None]
  - ORAL INTAKE REDUCED [None]
  - PANCYTOPENIA [None]
  - PYELONEPHRITIS [None]
  - PYREXIA [None]
  - WEIGHT DECREASED [None]
